FAERS Safety Report 10565181 (Version 1)
Quarter: 2014Q4

REPORT INFORMATION
  Report Type: Spontaneous
  Country: US (occurrence: None)
  Receive Date: 20141104
  Receipt Date: 20141104
  Transmission Date: 20150529
  Serious: Yes (Hospitalization)
  Sender: FDA-Public Use
  Company Number: None

PATIENT
  Age: 51 Year
  Sex: Male
  Weight: 76.6 kg

DRUGS (1)
  1. IODIXANOL [Suspect]
     Active Substance: IODIXANOL
     Indication: SCAN
     Route: 042
     Dates: start: 20141030, end: 20141030

REACTIONS (2)
  - Hypotension [None]
  - Contrast media reaction [None]

NARRATIVE: CASE EVENT DATE: 20141030
